FAERS Safety Report 7850768-7 (Version None)
Quarter: 2011Q4

REPORT INFORMATION
  Report Type: 
  Country: None (occurrence: None)
  Receive Date: 20111024
  Receipt Date: 20111012
  Transmission Date: 20120403
  Serious: Yes (Hospitalization, Other)
  Sender: FDA-Public Use
  Company Number: 2011-01177

PATIENT
  Age: 91 Year
  Sex: Female
  Weight: 65.7716 kg

DRUGS (1)
  1. LOVASTATIN [Suspect]
     Indication: HYPERCHOLESTEROLAEMIA
     Dosage: 40 MG (40 MG, 1 IN 1 D), PER ORAL; 80 MG (40 MG, 2 IN 1 D), PER ORAL
     Route: 048
     Dates: end: 20110728

REACTIONS (3)
  - PARALYSIS [None]
  - GAIT DISTURBANCE [None]
  - DRUG INEFFECTIVE [None]
